FAERS Safety Report 14037938 (Version 5)
Quarter: 2018Q1

REPORT INFORMATION
  Report Type: Report from Study
  Country: FR (occurrence: FR)
  Receive Date: 20171004
  Receipt Date: 20180207
  Transmission Date: 20180508
  Serious: Yes (Hospitalization, Other)
  Sender: FDA-Public Use
  Company Number: FR-INCYTE CORPORATION-2017IN008414

PATIENT

DRUGS (127)
  1. PREVISCAN//FLUINDIONE [Concomitant]
     Active Substance: FLUINDIONE
     Dosage: 20 MG, UNK (0.25 DF)
     Route: 065
     Dates: start: 20170307, end: 201703
  2. PROPANOLOL [Concomitant]
     Active Substance: PROPRANOLOL HYDROCHLORIDE
     Dosage: 40 MG, UNK (2 DFS IN THE MORNING AND 2 DF IN THE EVENING)
     Route: 065
     Dates: start: 201702, end: 201702
  3. ROSUVASTATIN. [Concomitant]
     Active Substance: ROSUVASTATIN
     Indication: HYPERCHOLESTEROLAEMIA
     Dosage: 10 MG, QD
     Route: 065
     Dates: start: 20151106, end: 201604
  4. PERINDOPRIL [Concomitant]
     Active Substance: PERINDOPRIL
     Dosage: 4 MG, UNK (1.5 DFS IN THE MORNING)
     Route: 065
     Dates: start: 201604, end: 201702
  5. JANUVIA [Concomitant]
     Active Substance: SITAGLIPTIN PHOSPHATE
     Dosage: 50 MG, UNK (2 DFS IN THE MORNING)
     Route: 065
     Dates: start: 20160414, end: 201608
  6. LASILIX [Concomitant]
     Active Substance: FUROSEMIDE
     Dosage: 500 MG, UNK (0.25 DF IN THE MORNING AND 0.25 DF AT NOON)
     Route: 048
     Dates: start: 20161125
  7. LASILIX [Concomitant]
     Active Substance: FUROSEMIDE
     Dosage: 40 MG, UNK (2 DFS IN THE MORNING AND 2  DFS AT NOON)
     Route: 048
  8. DIFFU K [Concomitant]
     Active Substance: POTASSIUM CHLORIDE
     Indication: PROPHYLAXIS
     Dosage: UNK
     Route: 048
     Dates: start: 201511
  9. DIFFU K [Concomitant]
     Active Substance: POTASSIUM CHLORIDE
     Dosage: 600 MG, UNK (2 DFS IN THE MORNING, 2 DFS AT NOON, 2 DFS IN THE EVENING)
     Route: 048
     Dates: start: 20160917, end: 201610
  10. DIFFU K [Concomitant]
     Active Substance: POTASSIUM CHLORIDE
     Dosage: 600 MG, UNK (2 DFS IN THE MORNING, 2 DFS AT NOON, 2 DFS IN THE EVENING)
     Route: 048
     Dates: start: 20161020, end: 201702
  11. VENTOLINE [Concomitant]
     Active Substance: ALBUTEROL
     Indication: RESTRICTIVE PULMONARY DISEASE
     Dosage: 100 UG, TID (IF NEEDED)
     Route: 065
     Dates: start: 201605
  12. ESOMEPRAZOLE [Concomitant]
     Active Substance: ESOMEPRAZOLE
     Dosage: 20 MG, QD
     Route: 048
     Dates: start: 201703
  13. ALDACTONE [Concomitant]
     Active Substance: SPIRONOLACTONE
     Dosage: 25 MG, QD
     Route: 048
     Dates: start: 201702, end: 201702
  14. TAZOCILLINE [Concomitant]
     Active Substance: PIPERACILLIN SODIUM\TAZOBACTAM SODIUM
     Indication: SEPSIS
     Dosage: 4 G, TID
     Route: 042
     Dates: start: 20170215, end: 20170222
  15. LASILIX [Concomitant]
     Active Substance: FUROSEMIDE
     Indication: CARDIAC FAILURE
     Dosage: 40 MG, TID (1 DF IN THE MORNING AND 0.5 DFS AT NOON)
     Route: 048
     Dates: end: 201603
  16. LASILIX [Concomitant]
     Active Substance: FUROSEMIDE
     Dosage: 40 MG, UNK (2 DFS IN THE MORNING, 1 DF AT NOON AND ? DFS IN THE EVENING)
     Route: 048
     Dates: start: 20160329, end: 201604
  17. LASILIX [Concomitant]
     Active Substance: FUROSEMIDE
     Dosage: 500 MG, UNK (0.5 DFS IN THE MORNING AND 0.25 DF AT NOON)
     Route: 048
  18. LASILIX [Concomitant]
     Active Substance: FUROSEMIDE
     Dosage: 1 G, QD
     Route: 042
     Dates: start: 20170213, end: 20170219
  19. DIFFU K [Concomitant]
     Active Substance: POTASSIUM CHLORIDE
     Dosage: 600 MG, QD
     Route: 048
     Dates: start: 20160610, end: 201608
  20. LANTUS [Concomitant]
     Active Substance: INSULIN GLARGINE
     Dosage: 27 IU, QD
     Route: 058
     Dates: start: 201609, end: 201609
  21. UMULINE [Concomitant]
     Active Substance: INSULIN HUMAN
     Indication: DIABETES MELLITUS
     Dosage: 26 IU, BID
     Route: 058
     Dates: start: 201609
  22. ESIDREX [Concomitant]
     Active Substance: HYDROCHLOROTHIAZIDE
     Indication: CARDIAC FAILURE
     Dosage: 25 MG, UNK (0.5 DF QD)
     Route: 048
     Dates: start: 201605, end: 201610
  23. DIAMICRON [Concomitant]
     Active Substance: GLICLAZIDE
     Indication: DIABETES MELLITUS
     Dosage: 30 MG, QD
     Route: 048
     Dates: start: 201605, end: 201702
  24. EUPANTOL [Concomitant]
     Active Substance: PANTOPRAZOLE SODIUM
     Indication: GASTRODUODENITIS
     Dosage: 40 MG, QD
     Route: 048
     Dates: start: 201606, end: 201703
  25. BISOCE [Concomitant]
     Active Substance: BISOPROLOL
     Indication: CARDIAC FAILURE
     Dosage: 5 MG, QD
     Route: 048
     Dates: start: 201702, end: 201702
  26. TOPALGIC LP [Concomitant]
     Active Substance: TRAMADOL HYDROCHLORIDE
     Indication: PAIN
     Dosage: 100 MG, BID
     Route: 048
     Dates: start: 201703
  27. IMOVANE [Concomitant]
     Active Substance: ZOPICLONE
     Indication: INSOMNIA
     Dosage: 3.75 MG, QD
     Route: 048
     Dates: start: 201703
  28. ARANESP [Concomitant]
     Active Substance: DARBEPOETIN ALFA
     Dosage: 1 DF, UNK (500 UG EVERY 15 DAYS)
     Route: 065
     Dates: start: 20160630, end: 20170210
  29. PREVISCAN//FLUINDIONE [Concomitant]
     Active Substance: FLUINDIONE
     Indication: THROMBOSIS PROPHYLAXIS
     Dosage: UNK
  30. PREVISCAN//FLUINDIONE [Concomitant]
     Active Substance: FLUINDIONE
     Dosage: 20 MG, UNK (0.5 DF)
     Route: 065
     Dates: start: 20170228, end: 20170228
  31. PERINDOPRIL [Concomitant]
     Active Substance: PERINDOPRIL
     Indication: HYPERTENSION
     Dosage: 4 MG, UNK (2 DF IN THE MORNING)
     Route: 065
     Dates: start: 20151108, end: 20151121
  32. PERINDOPRIL [Concomitant]
     Active Substance: PERINDOPRIL
     Dosage: 4 MG, UNK (1.5 DFS IN THE MORNING AND 0.5 DFS IN THE EVENING)
     Route: 065
     Dates: start: 20160331, end: 201604
  33. LASILIX [Concomitant]
     Active Substance: FUROSEMIDE
     Dosage: 40 MG, TID
     Route: 048
     Dates: start: 20160518, end: 20160601
  34. LASILIX [Concomitant]
     Active Substance: FUROSEMIDE
     Dosage: 40 MG, UNK (0.5 DFS IN THE MORNING)
     Route: 048
  35. LASILIX [Concomitant]
     Active Substance: FUROSEMIDE
     Dosage: 500 MG, QD
     Route: 042
     Dates: start: 20170220, end: 20170228
  36. LANTUS [Concomitant]
     Active Substance: INSULIN GLARGINE
     Dosage: 30 IU, QD
     Route: 058
     Dates: start: 201603, end: 2016
  37. PROPYLTHIOURACILE [Concomitant]
     Indication: HYPERTHYROIDISM
     Dosage: 50 MG, TID
     Route: 048
     Dates: start: 20160401, end: 20160406
  38. AMLODIPINE [Concomitant]
     Active Substance: AMLODIPINE BESYLATE
     Indication: HYPERTENSION
     Dosage: 5 MG, QD
     Route: 048
     Dates: start: 201603, end: 201609
  39. VENTOLINE [Concomitant]
     Active Substance: ALBUTEROL
     Dosage: 100 UG, TID (IF NEEDED)
     Route: 065
     Dates: start: 201605
  40. PARACETAMOL [Concomitant]
     Active Substance: ACETAMINOPHEN
     Dosage: 1 G, UNK (4 DFS PER DAY IF NEEDED)
     Route: 048
     Dates: start: 201606
  41. SPASFON [Concomitant]
     Active Substance: PHLOROGLUCINOL\1,3,5-TRIMETHOXYBENZENE
     Dosage: 80 MG, PRN
  42. SODIUM BICARBONATE. [Concomitant]
     Active Substance: SODIUM BICARBONATE
     Dosage: UNK UNK, TID
     Route: 065
     Dates: start: 20170217
  43. ARANESP [Concomitant]
     Active Substance: DARBEPOETIN ALFA
     Dosage: 1 DF, QMO (500 UG)
     Route: 065
     Dates: start: 20141212, end: 20160629
  44. PREVISCAN//FLUINDIONE [Concomitant]
     Active Substance: FLUINDIONE
     Dosage: 20 MG, UNK (ALTERNATION BETWEEN ? DFS AND ? DFS)
     Route: 065
     Dates: end: 20160817
  45. PREVISCAN//FLUINDIONE [Concomitant]
     Active Substance: FLUINDIONE
     Dosage: 20 MG, UNK (0.5 DF)
     Route: 065
     Dates: end: 20161013
  46. ELIQUIS [Concomitant]
     Active Substance: APIXABAN
     Indication: THROMBOSIS PROPHYLAXIS
     Dosage: 5 MG, BID
     Route: 042
     Dates: start: 20161014, end: 20170213
  47. PROPANOLOL [Concomitant]
     Active Substance: PROPRANOLOL HYDROCHLORIDE
     Indication: GASTROOESOPHAGEAL VARICEAL HAEMORRHAGE PROPHYLAXIS
     Dosage: 40 MG, QD
     Route: 065
     Dates: end: 20160603
  48. PERINDOPRIL [Concomitant]
     Active Substance: PERINDOPRIL
     Indication: CARDIAC FAILURE
     Dosage: UNK
     Dates: start: 20151106, end: 201604
  49. LASILIX [Concomitant]
     Active Substance: FUROSEMIDE
     Dosage: 40 MG, UNK (2 DFS IN THE MORNING AND 2 DFS AT NOON)
     Route: 048
     Dates: start: 201610, end: 20161124
  50. LASILIX [Concomitant]
     Active Substance: FUROSEMIDE
     Dosage: 40 MG, BID
  51. LANTUS [Concomitant]
     Active Substance: INSULIN GLARGINE
     Dosage: 20 IU, QD
     Route: 058
     Dates: start: 201603, end: 201604
  52. UMULINE [Concomitant]
     Active Substance: INSULIN HUMAN
     Dosage: 32 UI IN THE MORNING AND 18 UI IN THE EVENING
     Route: 058
     Dates: start: 20170218, end: 20170228
  53. AUGMENTIN [Concomitant]
     Active Substance: AMOXICILLIN\CLAVULANATE POTASSIUM
     Indication: BRONCHOPNEUMOPATHY
     Dosage: 1 G, BID
     Route: 048
     Dates: start: 20160512, end: 20160522
  54. PARACETAMOL [Concomitant]
     Active Substance: ACETAMINOPHEN
     Dosage: 1 G, UNK (4 DFS PER DAY IF NEEDED)
     Route: 048
     Dates: start: 201606
  55. ALDACTONE [Concomitant]
     Active Substance: SPIRONOLACTONE
     Dosage: 25 MG, (0.5 DF QD)
     Route: 048
     Dates: start: 201703
  56. DUPHALAC [Concomitant]
     Active Substance: LACTULOSE
     Indication: CONSTIPATION PROPHYLAXIS
     Dosage: 10 G/15 ML, TID
     Route: 048
     Dates: start: 201703
  57. SPASFON [Concomitant]
     Active Substance: PHLOROGLUCINOL\1,3,5-TRIMETHOXYBENZENE
     Indication: ABDOMINAL PAIN
     Dosage: UNK
     Route: 048
     Dates: start: 20170213
  58. SODIUM BICARBONATE. [Concomitant]
     Active Substance: SODIUM BICARBONATE
     Indication: ORAL CANDIDIASIS
     Dosage: UNK UNK, TID
     Route: 065
     Dates: start: 20170217
  59. SODIUM BICARBONATE. [Concomitant]
     Active Substance: SODIUM BICARBONATE
     Dosage: UNK UNK, TID
     Route: 065
     Dates: start: 20170217
  60. PREVISCAN//FLUINDIONE [Concomitant]
     Active Substance: FLUINDIONE
     Dosage: 20 MG, UNK (0.25 DF)
     Route: 065
     Dates: start: 20160914
  61. HEPARIN [Concomitant]
     Active Substance: HEPARIN SODIUM
     Dosage: 1 ML, QH
     Route: 042
     Dates: start: 20170210, end: 20170213
  62. PERINDOPRIL [Concomitant]
     Active Substance: PERINDOPRIL
     Dosage: 4 MG, UNK (1.5 DFS IN THE MORNING)
     Route: 065
     Dates: start: 20151122, end: 20160330
  63. LASILIX [Concomitant]
     Active Substance: FUROSEMIDE
     Dosage: 40 MG, QD
     Route: 048
     Dates: start: 20160602
  64. LASILIX [Concomitant]
     Active Substance: FUROSEMIDE
     Dosage: 500 MG, UNK (0.25 DF IN THE MORNING AND 0.25 DF AT NOON)
     Route: 048
     Dates: start: 201703
  65. LASILIX [Concomitant]
     Active Substance: FUROSEMIDE
     Dosage: 500 MG, UNK (0.5 DFS IN THE MORNING AND 0.25 DF AT NOON)
     Route: 048
  66. INEXIUM [Concomitant]
     Active Substance: ESOMEPRAZOLE
     Indication: GASTRODUODENITIS
     Dosage: 20 MG, QD
     Route: 048
     Dates: start: 201603, end: 201603
  67. LANTUS [Concomitant]
     Active Substance: INSULIN GLARGINE
     Indication: DIABETES MELLITUS
     Dosage: 32 IU, QD
     Route: 058
     Dates: end: 201603
  68. LANTUS [Concomitant]
     Active Substance: INSULIN GLARGINE
     Dosage: 26 IU, QD
     Route: 058
     Dates: start: 201604, end: 201609
  69. LANTUS [Concomitant]
     Active Substance: INSULIN GLARGINE
     Dosage: 15 IU, QD
     Route: 058
     Dates: start: 201703, end: 201703
  70. PARACETAMOL [Concomitant]
     Active Substance: ACETAMINOPHEN
     Indication: OSTEOARTHRITIS
     Dosage: 1 G, UNK (4 DFS PER DAY IF NEEDED)
     Route: 048
     Dates: start: 201606
  71. ALDACTONE [Concomitant]
     Active Substance: SPIRONOLACTONE
     Indication: OEDEMA
     Dosage: UNK
     Dates: start: 201702
  72. CANCIDAS [Concomitant]
     Active Substance: CASPOFUNGIN ACETATE
     Indication: PERITONEAL CANDIDIASIS
     Dosage: 70 MG, QD
     Route: 042
     Dates: start: 20170216, end: 20170226
  73. ROCEPHIN [Concomitant]
     Active Substance: CEFTRIAXONE SODIUM
     Indication: COLITIS ISCHAEMIC
     Dosage: UNK
     Route: 042
     Dates: start: 20170210, end: 20170214
  74. SPASFON [Concomitant]
     Active Substance: PHLOROGLUCINOL\1,3,5-TRIMETHOXYBENZENE
     Dosage: 80 MG, PRN
  75. JAKAVI [Suspect]
     Active Substance: RUXOLITINIB
     Dosage: 5 MG, BID
     Route: 048
     Dates: start: 201611, end: 20170209
  76. PREVISCAN//FLUINDIONE [Concomitant]
     Active Substance: FLUINDIONE
     Dosage: 20 MG, UNK (0.75 DF)
     Route: 065
     Dates: start: 201703
  77. HEPARIN [Concomitant]
     Active Substance: HEPARIN SODIUM
     Indication: THROMBOSIS PROPHYLAXIS
     Dosage: UNK
     Dates: start: 20170210, end: 20170227
  78. HEPARIN [Concomitant]
     Active Substance: HEPARIN SODIUM
     Dosage: 1.2 ML, QH
     Route: 042
     Dates: start: 20170214, end: 20170218
  79. PROPANOLOL [Concomitant]
     Active Substance: PROPRANOLOL HYDROCHLORIDE
     Dosage: 40 MG, UNK (2 DFS IN THE MORNING AND 2 DF IN THE EVENING)
     Route: 065
     Dates: start: 20160605, end: 20160606
  80. PROPANOLOL [Concomitant]
     Active Substance: PROPRANOLOL HYDROCHLORIDE
     Dosage: 40 MG, BID
     Route: 065
     Dates: end: 201702
  81. ROSUVASTATIN. [Concomitant]
     Active Substance: ROSUVASTATIN
     Dosage: 5 MG, QD
     Route: 065
     Dates: start: 201604, end: 2016
  82. LASILIX [Concomitant]
     Active Substance: FUROSEMIDE
     Dosage: 40 MG, UNK (2 DFS IN THE MORNING AND 2 DFS AT NOON)
     Route: 048
     Dates: start: 201605, end: 201605
  83. LASILIX [Concomitant]
     Active Substance: FUROSEMIDE
     Dosage: 40 MG, UNK (1 DF IN THE MORNING AND 1 DF AT NOON)
     Route: 048
     Dates: start: 201605, end: 20160517
  84. LASILIX [Concomitant]
     Active Substance: FUROSEMIDE
     Dosage: 40 MG, UNK (2 DFS IN THE MORNING AND 2  DFS AT NOON)
     Route: 048
  85. LASILIX [Concomitant]
     Active Substance: FUROSEMIDE
     Dosage: 40 MG, UNK (0.25 DF PER DAY)
     Route: 048
     Dates: start: 20170308, end: 201703
  86. DIFFU K [Concomitant]
     Active Substance: POTASSIUM CHLORIDE
     Dosage: 600 MG, UNK (2 DFS IN THE MORNING,2 DFS IN THE EVENING)
     Route: 048
     Dates: start: 201702, end: 201702
  87. DIFFU K [Concomitant]
     Active Substance: POTASSIUM CHLORIDE
     Dosage: 600 MG, UNK (2 DFS IN THE MORNING, 1DF AT NOON AND 1 DF IN THE EVENING)
     Route: 048
     Dates: start: 201703
  88. NOVORAPID [Concomitant]
     Active Substance: INSULIN ASPART
     Indication: DIABETES MELLITUS
     Dosage: 11 UI IN THE MORNING, 11UI AT NOON AND 10 UI IN THE EVENING
     Route: 058
     Dates: start: 20170301, end: 201703
  89. ESOMEPRAZOLE [Concomitant]
     Active Substance: ESOMEPRAZOLE
     Dosage: 20 MG, QD
     Route: 048
     Dates: start: 201703
  90. SERESTA [Concomitant]
     Active Substance: OXAZEPAM
     Indication: DEPRESSION
     Dosage: 10 MG, UNK (0.5 DF QD)
     Route: 048
     Dates: start: 201703
  91. TRIFLUCAN [Concomitant]
     Active Substance: FLUCONAZOLE
     Indication: PERITONEAL CANDIDIASIS
  92. JAKAVI [Suspect]
     Active Substance: RUXOLITINIB
     Indication: MYELOFIBROSIS
     Dosage: UNK
     Route: 048
     Dates: start: 20120302, end: 201611
  93. JAKAVI [Suspect]
     Active Substance: RUXOLITINIB
     Dosage: 5 MG, QD
     Route: 048
     Dates: start: 20170210, end: 201706
  94. PROPANOLOL [Concomitant]
     Active Substance: PROPRANOLOL HYDROCHLORIDE
     Dosage: 40 MG, UNK (2 DFS IN THE MORNING AND 1 DF IN THE EVENING)
     Route: 065
     Dates: start: 20160607
  95. JANUVIA [Concomitant]
     Active Substance: SITAGLIPTIN PHOSPHATE
     Indication: DIABETES MELLITUS
     Dosage: 50 MG, BID
     Route: 065
     Dates: start: 20140821, end: 20160413
  96. LASILIX [Concomitant]
     Active Substance: FUROSEMIDE
     Indication: ACUTE KIDNEY INJURY
     Dosage: 40 MG, TID
     Route: 048
     Dates: start: 20160306, end: 20160328
  97. LASILIX [Concomitant]
     Active Substance: FUROSEMIDE
     Dosage: 40 MG, UNK (2 DFS IN THE MORNING AND 1 DF AT NOON)
     Route: 048
     Dates: start: 201604, end: 201605
  98. LASILIX [Concomitant]
     Active Substance: FUROSEMIDE
     Dosage: 40 MG, UNK (0.5 DFS IN THE MORNING)
     Route: 048
  99. LASILIX [Concomitant]
     Active Substance: FUROSEMIDE
     Dosage: 40 MG, UNK (2 DFS IN THE MORNING AND 2  DFS AT NOON)
     Route: 048
  100. DIFFU K [Concomitant]
     Active Substance: POTASSIUM CHLORIDE
     Dosage: 600 MG, UNK (2 DFS IN THE MORNING, 2 DFS AT NOON, 2 DFS IN THE EVENING)
     Route: 048
     Dates: start: 20160309, end: 20160609
  101. DIFFU K [Concomitant]
     Active Substance: POTASSIUM CHLORIDE
     Dosage: 600 MG, BID
     Route: 048
     Dates: start: 201610, end: 201610
  102. VENTOLINE [Concomitant]
     Active Substance: ALBUTEROL
     Dosage: 100 UG, TID (IF NEEDED)
     Route: 065
     Dates: start: 201605
  103. ESOMEPRAZOLE [Concomitant]
     Active Substance: ESOMEPRAZOLE
     Indication: GASTRODUODENITIS
     Dosage: 20 MG, QD
     Route: 048
     Dates: start: 201703
  104. KARDEGIC [Concomitant]
     Active Substance: ASPIRIN DL-LYSINE
     Indication: MYOCARDIAL ISCHAEMIA
     Dosage: 75 MG, QD
     Route: 048
     Dates: start: 201606, end: 20160818
  105. ALLOPURINOL. [Concomitant]
     Active Substance: ALLOPURINOL
     Indication: OSTEOARTHRITIS
     Dosage: 300 MG, QD
     Route: 048
     Dates: start: 20160819
  106. CANCIDAS [Concomitant]
     Active Substance: CASPOFUNGIN ACETATE
     Indication: CANDIDA INFECTION
  107. TRIFLUCAN [Concomitant]
     Active Substance: FLUCONAZOLE
     Indication: CANDIDA INFECTION
     Dosage: 800 MG, QD
     Route: 042
     Dates: start: 20170215, end: 20170215
  108. SPASFON [Concomitant]
     Active Substance: PHLOROGLUCINOL\1,3,5-TRIMETHOXYBENZENE
     Dosage: 80 MG, PRN
  109. ARANESP [Concomitant]
     Active Substance: DARBEPOETIN ALFA
     Indication: ANAEMIA PROPHYLAXIS
     Dosage: UNK
     Dates: start: 20141212, end: 20170210
  110. PREVISCAN//FLUINDIONE [Concomitant]
     Active Substance: FLUINDIONE
     Dosage: 20 MG, UNK (0.5 DF)
     Route: 065
     Dates: start: 20160818, end: 20160913
  111. ELIQUIS [Concomitant]
     Active Substance: APIXABAN
     Indication: ATRIAL FIBRILLATION
  112. HEPARIN [Concomitant]
     Active Substance: HEPARIN SODIUM
     Dosage: 1.4 ML, QH
     Route: 042
     Dates: start: 20170219, end: 20170227
  113. PROPANOLOL [Concomitant]
     Active Substance: PROPRANOLOL HYDROCHLORIDE
     Dosage: 160 MG, QD
     Route: 065
     Dates: end: 20160604
  114. FLECAINIDE [Concomitant]
     Active Substance: FLECAINIDE
     Indication: ATRIAL FIBRILLATION
     Dosage: 50 MG, QD
     Route: 065
     Dates: start: 20140220, end: 20160602
  115. PERINDOPRIL [Concomitant]
     Active Substance: PERINDOPRIL
     Dosage: 4 MG, UNK (0.5 DFS IN THE MORNING)
     Route: 065
     Dates: start: 20170223, end: 201703
  116. LASILIX [Concomitant]
     Active Substance: FUROSEMIDE
     Dosage: 40 MG, BID
     Route: 048
  117. LASILIX [Concomitant]
     Active Substance: FUROSEMIDE
     Dosage: 40 MG, UNK (2 DFS IN THE MORNING AND 1 DF AT NOON)
     Route: 048
     Dates: start: 201609, end: 201610
  118. LASILIX [Concomitant]
     Active Substance: FUROSEMIDE
     Dosage: 40 MG, BID
  119. LASILIX [Concomitant]
     Active Substance: FUROSEMIDE
     Dosage: 40 MG, UNK (0.5 DFS IN THE MORNING)
     Route: 048
  120. LASILIX [Concomitant]
     Active Substance: FUROSEMIDE
     Dosage: 500 MG, UNK (0.5 DFS IN THE MORNING AND 0.25 DF AT NOON)
     Route: 048
  121. DIFFU K [Concomitant]
     Active Substance: POTASSIUM CHLORIDE
     Dosage: 600 MG, UNK (3 DFS IN THE MORNING, 3 DFS AT NOON, 3 DFS IN THE EVENING)
     Route: 048
     Dates: start: 201511, end: 20160308
  122. UMULINE [Concomitant]
     Active Substance: INSULIN HUMAN
     Dosage: 30 UI IN THE MORNING AND 18 UI IN THE EVENING
     Route: 058
     Dates: start: 20170209, end: 20170217
  123. AMLODIPINE [Concomitant]
     Active Substance: AMLODIPINE BESYLATE
     Dosage: 10 MG, QD
     Route: 048
     Dates: start: 201609, end: 201610
  124. AMIODARONE [Concomitant]
     Active Substance: AMIODARONE
     Indication: ATRIAL FIBRILLATION
     Dosage: 150 MG, QD
     Route: 042
     Dates: start: 20170214, end: 20170214
  125. DEROXAT [Concomitant]
     Active Substance: PAROXETINE HYDROCHLORIDE
     Indication: DEPRESSION
     Dosage: 20 MG, QD
     Route: 048
     Dates: start: 201703
  126. HUMALOG [Concomitant]
     Active Substance: INSULIN LISPRO
     Indication: DIABETES MELLITUS
     Dosage: 0.1 IU, TID
     Route: 058
     Dates: start: 201703
  127. FLAGYL [Concomitant]
     Active Substance: METRONIDAZOLE\METRONIDAZOLE HYDROCHLORIDE
     Indication: COLITIS ISCHAEMIC
     Dosage: UNK
     Route: 048
     Dates: start: 20170210, end: 20170214

REACTIONS (6)
  - Back pain [Recovering/Resolving]
  - Cardiac failure [Recovered/Resolved]
  - Fall [Unknown]
  - Inflammation [Recovered/Resolved]
  - Fracture [Recovered/Resolved]
  - Craniocerebral injury [Unknown]

NARRATIVE: CASE EVENT DATE: 20170602
